FAERS Safety Report 5019174-7 (Version None)
Quarter: 2006Q2

REPORT INFORMATION
  Report Type: 
  Country: None (occurrence: None)
  Receive Date: 20060606
  Receipt Date: 20060526
  Transmission Date: 20061013
  Serious: Yes (Other)
  Sender: FDA-Public Use
  Company Number: US-JNJFOC-20060506035

PATIENT
  Sex: Male
  Weight: 80 kg

DRUGS (4)
  1. REMICADE [Suspect]
     Route: 042
  2. REMICADE [Suspect]
     Indication: CROHN'S DISEASE
     Route: 042
  3. 6-MP [Suspect]
     Indication: DRUG USE FOR UNKNOWN INDICATION
  4. ENTOCORT [Concomitant]

REACTIONS (2)
  - HODGKIN'S DISEASE [None]
  - NEUTROPENIA [None]
